FAERS Safety Report 19584875 (Version 1)
Quarter: 2021Q3

REPORT INFORMATION
  Report Type: Spontaneous
  Country: US (occurrence: US)
  Receive Date: 20210720
  Receipt Date: 20210720
  Transmission Date: 20211014
  Serious: No
  Sender: FDA-Public Use
  Company Number: US-PFIZER INC-2021515767

PATIENT
  Age: 71 Year
  Sex: Female

DRUGS (1)
  1. RUXIENCE [Suspect]
     Active Substance: RITUXIMAB-PVVR
     Dosage: 1000 MG, (1000MG OF RUXIENCE ON DAY 0 AND DAY 14)

REACTIONS (2)
  - Off label use [Unknown]
  - Dyspnoea [Unknown]
